FAERS Safety Report 4811696-4 (Version None)
Quarter: 2005Q4

REPORT INFORMATION
  Report Type: 
  Country: None (occurrence: None)
  Receive Date: 20051025
  Receipt Date: 20051010
  Transmission Date: 20060501
  Serious: Yes (Other)
  Sender: FDA-Public Use
  Company Number: S04-CAN-07580-01

PATIENT
  Age: 27 Year
  Sex: Female

DRUGS (3)
  1. CELEXA [Suspect]
     Indication: DEPRESSION
     Dosage: 30 MG QD PO
     Route: 048
     Dates: start: 20030101
  2. CELEXA [Suspect]
     Indication: DEPRESSION
     Dates: start: 20020101, end: 20030101
  3. MULTIVITAMIN WITH FOLIC ACID [Concomitant]

REACTIONS (14)
  - CANDIDIASIS [None]
  - DRUG EXPOSURE DURING PREGNANCY [None]
  - DRUG EXPOSURE VIA BREAST MILK [None]
  - EMOTIONAL DISORDER [None]
  - EUPHORIC MOOD [None]
  - FEELING ABNORMAL [None]
  - GALACTOSTASIS [None]
  - HAEMORRHAGE [None]
  - NAUSEA [None]
  - NEPHROLITHIASIS [None]
  - NIPPLE PAIN [None]
  - PREGNANCY [None]
  - PROLONGED LABOUR [None]
  - VAGINAL HAEMORRHAGE [None]
